FAERS Safety Report 17158382 (Version 4)
Quarter: 2020Q1

REPORT INFORMATION
  Report Type: Spontaneous
  Country: TR (occurrence: TR)
  Receive Date: 20191216
  Receipt Date: 20200127
  Transmission Date: 20200409
  Serious: Yes (Death, Hospitalization, Other)
  Sender: FDA-Public Use
  Company Number: TR-ASTELLAS-2019US049690

PATIENT
  Age: 77 Year
  Sex: Male

DRUGS (2)
  1. ELIGARD [Concomitant]
     Active Substance: LEUPROLIDE ACETATE
     Indication: PROSTATE CANCER
     Dosage: 22.5 MG, EVERY 3 MONTHS
     Route: 065
  2. XTANDI [Suspect]
     Active Substance: ENZALUTAMIDE
     Indication: HORMONE-REFRACTORY PROSTATE CANCER
     Dosage: 160 MG, ONCE DAILY (IN THE MORNING)
     Route: 048
     Dates: start: 20190711, end: 20191207

REACTIONS (4)
  - Condition aggravated [Fatal]
  - Pneumonia [Not Recovered/Not Resolved]
  - Pulmonary embolism [Not Recovered/Not Resolved]
  - Peripheral swelling [Not Recovered/Not Resolved]

NARRATIVE: CASE EVENT DATE: 20191130
